FAERS Safety Report 8401092-5 (Version None)
Quarter: 2012Q2

REPORT INFORMATION
  Report Type: 
  Country: None (occurrence: None)
  Receive Date: 20120601
  Receipt Date: 20120529
  Transmission Date: 20120825
  Serious: No
  Sender: FDA-Public Use
  Company Number: US-PFIZER INC-2012113293

PATIENT
  Sex: Male
  Weight: 115.65 kg

DRUGS (14)
  1. ZOLPIDEM [Concomitant]
     Dosage: 5 MG, 1X/DAY
  2. SYNTHROID [Concomitant]
     Dosage: 200 UG, 1X/DAY
  3. CYMBALTA [Concomitant]
     Dosage: 60 MG, 1X/DAY
  4. AMLODIPINE [Concomitant]
     Dosage: 10 MG, 1X/DAY
  5. DIOVAN HCT [Concomitant]
     Dosage: 320/25 MG, 1X/DAY
  6. NORVASC [Concomitant]
     Dosage: UNK
  7. POTASSIUM CHLORIDE [Concomitant]
     Dosage: 20 MEQ, 4X/DAY
  8. TERAZOSIN [Concomitant]
     Dosage: 5 MG, 1X/DAY
  9. ZOCOR [Concomitant]
     Dosage: 20 MG, 1X/DAY
  10. SUTENT [Suspect]
     Indication: METASTATIC RENAL CELL CARCINOMA
     Dosage: 50 MG ONCY DAILY
     Route: 048
     Dates: start: 20120316
  11. SUTENT [Suspect]
     Indication: RENAL CELL CARCINOMA
  12. PRILOSEC [Concomitant]
     Dosage: UNK
  13. TOPROL-XL [Concomitant]
     Dosage: 200 MG, 1X/DAY
  14. AVODART [Concomitant]
     Dosage: UNK, 1X/DAY

REACTIONS (5)
  - FATIGUE [None]
  - WEIGHT DECREASED [None]
  - NAUSEA [None]
  - ABDOMINAL PAIN [None]
  - DYSPEPSIA [None]
